FAERS Safety Report 19187507 (Version 1)
Quarter: 2021Q2

REPORT INFORMATION
  Report Type: Spontaneous
  Country: US (occurrence: US)
  Receive Date: 20210428
  Receipt Date: 20210428
  Transmission Date: 20210717
  Serious: No
  Sender: FDA-Public Use
  Company Number: US-GILEAD-2021-0525606

PATIENT
  Sex: Male

DRUGS (1)
  1. TRUVADA [Suspect]
     Active Substance: EMTRICITABINE\TENOFOVIR DISOPROXIL FUMARATE
     Indication: HIV INFECTION
     Dosage: UNK
     Route: 065

REACTIONS (9)
  - Tooth disorder [Unknown]
  - Tooth extraction [Unknown]
  - Tooth loss [Unknown]
  - Device failure [Unknown]
  - Sinus perforation [Unknown]
  - Tooth fracture [Unknown]
  - Renal impairment [Unknown]
  - Ill-defined disorder [Unknown]
  - Hepatic function abnormal [Unknown]
